FAERS Safety Report 25548497 (Version 4)
Quarter: 2025Q3

REPORT INFORMATION
  Report Type: Report from Study
  Country: EU (occurrence: EU)
  Receive Date: 20250714
  Receipt Date: 20250822
  Transmission Date: 20251021
  Serious: Yes (Death)
  Sender: TEVA
  Company Number: EU-TEVA-VS-3350484

PATIENT

DRUGS (1)
  1. EVEROLIMUS [Suspect]
     Active Substance: EVEROLIMUS
     Indication: Cardiovascular event prophylaxis
     Route: 065

REACTIONS (1)
  - Drug ineffective [Fatal]
